FAERS Safety Report 8842118 (Version 1)
Quarter: 2012Q4

REPORT INFORMATION
  Report Type: Spontaneous
  Country: US (occurrence: None)
  Receive Date: 20121015
  Receipt Date: 20121015
  Transmission Date: 20130627
  Serious: Yes (Other)
  Sender: FDA-Public Use
  Company Number: None

PATIENT
  Age: 77 Year
  Sex: Male
  Weight: 100.47 kg

DRUGS (1)
  1. BRIMONIDNE [Suspect]
     Indication: PRIMARY OPEN ANGLE GLAUCOMA
     Route: 047
     Dates: start: 20110715, end: 20120918

REACTIONS (3)
  - Ocular hyperaemia [None]
  - Eye irritation [None]
  - Product substitution issue [None]
